FAERS Safety Report 7284062-2 (Version None)
Quarter: 2011Q1

REPORT INFORMATION
  Report Type: 
  Country: None (occurrence: None)
  Receive Date: 20110209
  Receipt Date: 20110204
  Transmission Date: 20110831
  Serious: Yes (Other)
  Sender: FDA-Public Use
  Company Number: ES-ABBOTT-11P-144-0702992-00

PATIENT
  Age: 57 Year
  Sex: Female
  Weight: 80 kg

DRUGS (1)
  1. HUMIRA [Suspect]
     Indication: PSORIASIS
     Dosage: INITAL DOSE: 80MG; 1 IN 2 WEEKS
     Route: 058
     Dates: start: 20100701, end: 20101221

REACTIONS (1)
  - THALAMIC INFARCTION [None]
